FAERS Safety Report 5866478-1 (Version None)
Quarter: 2008Q3

REPORT INFORMATION
  Report Type: 
  Country: None (occurrence: None)
  Receive Date: 20080902
  Receipt Date: 20080902
  Transmission Date: 20090109
  Serious: Yes (Hospitalization)
  Sender: FDA-Public Use
  Company Number: PHEH1998US03313

PATIENT
  Weight: 84 kg

DRUGS (16)
  1. NEORAL [Suspect]
     Route: 048
     Dates: start: 19960316
  2. KEFLEX [Suspect]
     Route: 048
     Dates: start: 19970401, end: 19970408
  3. AXID [Concomitant]
  4. MYCOSTATIN [Concomitant]
  5. COLACE (DOCUSATE SODIUM) [Concomitant]
  6. PREDNISONE TAB [Concomitant]
  7. SOLU-MEDROL [Concomitant]
  8. HYTRIN [Concomitant]
  9. CELLCEPT [Concomitant]
  10. DEXAMETHAZONE (DEXAMETHASONE) [Concomitant]
  11. ATROVENT [Concomitant]
  12. PRAVACHOL [Concomitant]
  13. ALBUTEROL [Concomitant]
  14. QUININE SULFATE [Concomitant]
  15. MAGNESIUM SULFATE [Concomitant]
  16. HALCION [Concomitant]

REACTIONS (1)
  - RENAL IMPAIRMENT [None]
